FAERS Safety Report 7591817-3 (Version None)
Quarter: 2011Q3

REPORT INFORMATION
  Report Type: 
  Country: None (occurrence: None)
  Receive Date: 20110701
  Receipt Date: 20110701
  Transmission Date: 20111222
  Serious: Yes (Life-Threatening, Hospitalization, Other)
  Sender: FDA-Public Use
  Company Number: None

PATIENT
  Age: 78 Year
  Sex: Female
  Weight: 86.1834 kg

DRUGS (1)
  1. LEVAQUIN [Suspect]
     Dosage: 1 TABLET PER DAY FOR 10 DAYS PO
     Route: 048
     Dates: start: 20110104, end: 20110114

REACTIONS (9)
  - PAIN IN EXTREMITY [None]
  - ARTHROPATHY [None]
  - THROMBOSIS [None]
  - SKIN DISCOLOURATION [None]
  - VARICOSE VEIN [None]
  - MUSCULAR WEAKNESS [None]
  - JOINT SWELLING [None]
  - ERYTHEMA [None]
  - VEIN DISORDER [None]
